FAERS Safety Report 4953579-5 (Version None)
Quarter: 2006Q1

REPORT INFORMATION
  Report Type: 
  Country: None (occurrence: None)
  Receive Date: 20060324
  Receipt Date: 20051110
  Transmission Date: 20060701
  Serious: Yes (Hospitalization, Disabling)
  Sender: FDA-Public Use
  Company Number: US-MERCK-0511USA01900

PATIENT
  Age: 60 Year
  Sex: Male
  Weight: 80 kg

DRUGS (7)
  1. CARDIZEM [Concomitant]
     Indication: HYPERTENSION
     Route: 065
     Dates: start: 19990101
  2. VIOXX [Suspect]
     Indication: ARTHRALGIA
     Route: 048
     Dates: start: 19991122, end: 20040830
  3. VIOXX [Suspect]
     Route: 048
     Dates: start: 19991122, end: 20040830
  4. NORVASC [Concomitant]
     Indication: HYPERTENSION
     Route: 065
     Dates: start: 19990101, end: 20030101
  5. PLAVIX [Concomitant]
     Route: 065
  6. ALEVE [Concomitant]
     Route: 065
     Dates: start: 19850101
  7. MOTRIN [Concomitant]
     Route: 065
     Dates: start: 19870101, end: 19990101

REACTIONS (22)
  - ALLERGY TO ARTHROPOD STING [None]
  - ARTHRALGIA [None]
  - ASTHENIA [None]
  - BLOOD CHOLESTEROL INCREASED [None]
  - CAROTID ARTERY STENOSIS [None]
  - CARPAL TUNNEL SYNDROME [None]
  - CEREBROVASCULAR ACCIDENT [None]
  - CERVICOBRACHIAL SYNDROME [None]
  - CHEST PAIN [None]
  - COGNITIVE DISORDER [None]
  - COLON CANCER [None]
  - DIARRHOEA [None]
  - EXOSTOSIS [None]
  - HAEMORRHOIDS [None]
  - HYPERLIPIDAEMIA [None]
  - HYPERTENSION [None]
  - HYPOAESTHESIA [None]
  - NECK INJURY [None]
  - RECTAL PROLAPSE [None]
  - SPEECH DISORDER [None]
  - URINARY RETENTION [None]
  - VIRAL INFECTION [None]
